FAERS Safety Report 19243063 (Version 2)
Quarter: 2021Q2

REPORT INFORMATION
  Report Type: Report from Study
  Country: IT (occurrence: IT)
  Receive Date: 20210511
  Receipt Date: 20210513
  Transmission Date: 20210717
  Serious: Yes (Other)
  Sender: FDA-Public Use
  Company Number: IT-B.I. PHARMACEUTICALS,INC./RIDGEFIELD-2021-BI-101333

PATIENT
  Age: 61 Year
  Sex: Female
  Weight: 0 kg

DRUGS (1)
  1. MOBIC [Suspect]
     Active Substance: MELOXICAM
     Indication: PAIN
     Route: 048
     Dates: start: 20210415, end: 20210426

REACTIONS (1)
  - Palmar erythema [Recovering/Resolving]

NARRATIVE: CASE EVENT DATE: 20210417
